FAERS Safety Report 8534817-9 (Version None)
Quarter: 2012Q3

REPORT INFORMATION
  Report Type: 
  Country: None (occurrence: None)
  Receive Date: 20120711
  Receipt Date: 20120705
  Transmission Date: 20120928
  Serious: Yes (Hospitalization, Other)
  Sender: FDA-Public Use
  Company Number: 2011027766

PATIENT
  Age: 47 Year
  Sex: Male
  Weight: 104.3273 kg

DRUGS (30)
  1. HIZENTRA [Suspect]
     Indication: IMMUNODEFICIENCY COMMON VARIABLE
     Dosage: 15;5ML;75ML;4G;20ML 1X/WEEK, INFLUSED 75 ML AT 20% SUBCUTANEOUS
     Route: 058
     Dates: start: 20111126
  2. HIZENTRA [Suspect]
     Indication: IMMUNODEFICIENCY COMMON VARIABLE
     Dosage: 15;5ML;75ML;4G;20ML 1X/WEEK, INFLUSED 75 ML AT 20% SUBCUTANEOUS
     Route: 058
     Dates: start: 20110108
  3. HIZENTRA [Suspect]
     Indication: IMMUNODEFICIENCY COMMON VARIABLE
     Dosage: 15;5ML;75ML;4G;20ML 1X/WEEK, INFLUSED 75 ML AT 20% SUBCUTANEOUS
     Route: 058
     Dates: start: 20120626, end: 20120626
  4. LEXAPRO [Concomitant]
  5. PULMICORT [Concomitant]
  6. HIZENTRA [Suspect]
  7. DUONEB [Concomitant]
  8. HIZENTRA [Suspect]
  9. DILANTIN [Concomitant]
  10. ADVAIR DISKUS (SERETIDE) [Concomitant]
  11. NASONEX [Concomitant]
  12. HIZENTRA [Suspect]
  13. ALBUTEROL [Concomitant]
  14. FUROSEMIDE [Concomitant]
  15. METOPROLOL TARTRATE [Concomitant]
  16. FISH OIL (FISH OIL) [Concomitant]
  17. ASPIRIN [Concomitant]
  18. FLECAINIDE ACETATE [Concomitant]
  19. HIZENTRA [Suspect]
  20. ZOLOFT [Concomitant]
  21. LIPITOR [Concomitant]
  22. LISINOPRIL [Concomitant]
  23. HIZENTRA [Suspect]
  24. FLECAINIDE ACETATE [Concomitant]
  25. ATROVENT [Concomitant]
  26. EXCEDRIN (EXCEDRIN /00214201/) [Concomitant]
  27. HIZENTRA [Suspect]
  28. HIZENTRA [Suspect]
  29. TRICOR [Concomitant]
  30. VITAMIN B-COMPLEX (VITAMIN B-COMPLEX /00282501/) [Concomitant]

REACTIONS (4)
  - HEADACHE [None]
  - FATIGUE [None]
  - PAIN [None]
  - PNEUMONIA [None]
